FAERS Safety Report 5586239-0 (Version None)
Quarter: 2007Q4

REPORT INFORMATION
  Report Type: 
  Country: None (occurrence: None)
  Receive Date: 20071205
  Receipt Date: 20070615
  Transmission Date: 20080405
  Serious: Yes (Other)
  Sender: FDA-Public Use
  Company Number: HQWYE704320JUN07

PATIENT
  Sex: Female

DRUGS (1)
  1. EFFEXOR XR [Suspect]
     Dosage: ^ABOVE 225 MG^ FRQUENCY UNKNOWN, ORAL
     Route: 048

REACTIONS (1)
  - ABNORMAL SLEEP-RELATED EVENT [None]
